FAERS Safety Report 11265742 (Version 1)
Quarter: 2015Q3

REPORT INFORMATION
  Report Type: Spontaneous
  Country: US (occurrence: US)
  Receive Date: 20150713
  Receipt Date: 20150713
  Transmission Date: 20151125
  Serious: No
  Sender: FDA-Public Use
  Company Number: US-TAKEDA-2012-07408

PATIENT
  Age: 25 Year
  Sex: Female

DRUGS (1)
  1. VELCADE [Suspect]
     Active Substance: BORTEZOMIB
     Indication: ACCIDENTAL EXPOSURE TO PRODUCT
     Dosage: UNK
     Dates: start: 20121019

REACTIONS (3)
  - Accidental exposure to product [Recovered/Resolved]
  - Occupational exposure to product [Recovered/Resolved]
  - Injury associated with device [Recovered/Resolved]

NARRATIVE: CASE EVENT DATE: 20121019
